FAERS Safety Report 4545774-4 (Version None)
Quarter: 2005Q1

REPORT INFORMATION
  Report Type: 
  Country: None (occurrence: None)
  Receive Date: 20050106
  Receipt Date: 20041227
  Transmission Date: 20050727
  Serious: Yes (Hospitalization)
  Sender: FDA-Public Use
  Company Number: JP-JNJFOC-20040900928

PATIENT
  Sex: Female
  Weight: 49 kg

DRUGS (15)
  1. REMICADE [Suspect]
     Route: 042
  2. REMICADE [Suspect]
     Route: 042
  3. REMICADE [Suspect]
     Route: 042
  4. REMICADE [Suspect]
     Indication: RHEUMATOID ARTHRITIS
     Route: 042
  5. RHEUMATREX [Suspect]
  6. RHEUMATREX [Suspect]
     Indication: RHEUMATOID ARTHRITIS
  7. PREDNISOLONE [Concomitant]
  8. PURSENNID [Concomitant]
     Dosage: 2 T PER DAY
     Route: 049
  9. PURSENNID [Concomitant]
     Route: 049
  10. LANSOPRAZOLE [Concomitant]
     Route: 049
  11. LANSOPRAZOLE [Concomitant]
     Route: 049
  12. HYPEN [Concomitant]
  13. ACTONEL [Concomitant]
     Dosage: 1T PER DAY
     Route: 049
  14. CLINORIL [Concomitant]
     Indication: RHEUMATOID ARTHRITIS
     Dosage: 3 T PER DAY
     Route: 049
  15. LEUCOVORIN [Concomitant]
     Route: 049

REACTIONS (4)
  - GASTRIC ULCER [None]
  - INTERSTITIAL LUNG DISEASE [None]
  - PLATELET COUNT INCREASED [None]
  - PNEUMOCYSTIS JIROVECI PNEUMONIA [None]
